FAERS Safety Report 19444599 (Version 1)
Quarter: 2021Q2

REPORT INFORMATION
  Report Type: Report from Study
  Country: US (occurrence: US)
  Receive Date: 20210621
  Receipt Date: 20210621
  Transmission Date: 20210717
  Serious: Yes (Other)
  Sender: FDA-Public Use
  Company Number: US-MYLANLABS-2021M1035498

PATIENT
  Age: 10 Year
  Sex: Male

DRUGS (2)
  1. LEUPROLIDE                         /00726901/ [Suspect]
     Active Substance: LEUPROLIDE
     Indication: PRECOCIOUS PUBERTY
     Dosage: UNK
     Route: 065
  2. LEVOTHYROXINE. [Suspect]
     Active Substance: LEVOTHYROXINE
     Indication: HYPOTHYROIDISM
     Dosage: UNK
     Route: 065

REACTIONS (1)
  - Papilloedema [Unknown]
